FAERS Safety Report 17517062 (Version 1)
Quarter: 2020Q1

REPORT INFORMATION
  Report Type: Spontaneous
  Country: GB (occurrence: GB)
  Receive Date: 20200309
  Receipt Date: 20200309
  Transmission Date: 20200409
  Serious: Yes (Death, Other)
  Sender: FDA-Public Use
  Company Number: GB-MYLANLABS-2020M1011809

PATIENT
  Age: 68 Year
  Sex: Female
  Weight: 68 kg

DRUGS (37)
  1. TRASTUZUMAB. [Suspect]
     Active Substance: TRASTUZUMAB
     Indication: BREAST CANCER
     Dosage: UNK
     Dates: start: 201909
  2. TAZOCIN [Concomitant]
     Active Substance: PIPERACILLIN SODIUM\TAZOBACTAM SODIUM
     Indication: INFECTION
     Dosage: 18 GRAM, QD
     Route: 042
  3. PROPOFOL. [Concomitant]
     Active Substance: PROPOFOL
     Dosage: UNK UNK
     Route: 042
  4. NORADRENALINE                      /00127501/ [Concomitant]
     Active Substance: NOREPINEPHRINE
     Indication: HYPOTENSION
     Dosage: UNK
     Route: 042
  5. CYCLOPHOSPHAMIDE. [Concomitant]
     Active Substance: CYCLOPHOSPHAMIDE
     Indication: BREAST CANCER
     Dosage: UNK
     Dates: start: 201908, end: 201909
  6. GENTAMICIN. [Concomitant]
     Active Substance: GENTAMICIN
     Indication: INFECTION
     Dosage: 320 MILLIGRAM, QD
     Route: 042
  7. ENOXAPARIN [Concomitant]
     Active Substance: ENOXAPARIN
     Indication: EMBOLISM VENOUS
     Dosage: 40 MILLIGRAM, QD
     Route: 058
  8. RANITIDINE. [Concomitant]
     Active Substance: RANITIDINE
     Indication: STRESS ULCER
     Dosage: 150 MILLIGRAM, QD
     Route: 042
  9. IPRATROPIUM [Concomitant]
     Active Substance: IPRATROPIUM
     Indication: WHEEZING
     Dosage: 2 GRAM, QD
  10. HUMAN ACTRAPID [Concomitant]
     Active Substance: INSULIN HUMAN
     Indication: HYPERGLYCAEMIA
     Route: 042
  11. FILGRASTIM [Concomitant]
     Active Substance: FILGRASTIM
     Dosage: FOLLOWING CHEMOTHERAPY FOR 7 DAYS
     Route: 058
     Dates: start: 20191103
  12. PERTUZUMAB. [Suspect]
     Active Substance: PERTUZUMAB
     Indication: BREAST CANCER
     Dosage: UNK
     Dates: start: 201909
  13. HYDROCORTISONE. [Concomitant]
     Active Substance: HYDROCORTISONE
     Indication: SEPSIS
     Dosage: 200 MILLIGRAM, QD
     Route: 042
  14. FUROSEMIDE. [Concomitant]
     Active Substance: FUROSEMIDE
     Indication: OEDEMA
     Dosage: 150 MILLIGRAM, QD
     Route: 042
  15. PROPOFOL. [Concomitant]
     Active Substance: PROPOFOL
     Indication: PRURITUS
     Dosage: 10 MILLIGRAM, PRN
     Route: 042
  16. MAGNESIUM [Concomitant]
     Active Substance: MAGNESIUM
     Indication: HYPOMAGNESAEMIA
     Dosage: UNK
     Route: 042
  17. ATRACURIUM [Concomitant]
     Active Substance: ATRACURIUM
     Dosage: IV BOLUS AND THEN IV INFUSION, FOR PARALYSIS FOR VENTILATION.
     Route: 042
  18. FLUOXETINE [Concomitant]
     Active Substance: FLUOXETINE HYDROCHLORIDE
     Dosage: 20 MILLIGRAM, QD
  19. CYCLIZINE [Concomitant]
     Active Substance: CYCLIZINE
     Indication: NAUSEA
     Dosage: 50 MILLIGRAM, PRN
     Route: 042
  20. PARACETAMOL [Concomitant]
     Active Substance: ACETAMINOPHEN
     Indication: PAIN
     Dosage: 135 GRAM, PRN
  21. MEROPENEM. [Concomitant]
     Active Substance: MEROPENEM
     Indication: INFECTION
     Dosage: 3 GRAM, QD
  22. LANSOPRAZOLE. [Concomitant]
     Active Substance: LANSOPRAZOLE
     Dosage: 30 MILLIGRAM, QD
  23. DOCETAXEL. [Suspect]
     Active Substance: DOCETAXEL
     Indication: BREAST CANCER
     Dosage: UNK
     Dates: start: 201909
  24. LOPERAMIDE [Concomitant]
     Active Substance: LOPERAMIDE
     Dosage: 8 MILLIGRAM, QD
  25. EPIRUBICIN [Concomitant]
     Active Substance: EPIRUBICIN
     Indication: BREAST CANCER
     Dosage: UNK
     Dates: start: 201908, end: 201909
  26. CODEINE PHOSPHATE [Concomitant]
     Active Substance: CODEINE PHOSPHATE
     Indication: OROPHARYNGEAL PAIN
     Dosage: 30 MILLIGRAM, PRN
     Route: 048
  27. SALBUTAMOL [Concomitant]
     Active Substance: ALBUTEROL
     Dosage: 2 DOSAGE FORM, PRN PUFFS
  28. INCRUSE ELLIPTA [Concomitant]
     Active Substance: UMECLIDINIUM BROMIDE
     Dosage: 1 DOSAGE FORM, QD
     Route: 055
  29. POTASSIUM [Concomitant]
     Active Substance: POTASSIUM
     Indication: HYPOKALAEMIA
     Dosage: UNK
     Route: 042
  30. VITAMIN K [Concomitant]
     Active Substance: PHYTONADIONE
     Indication: COAGULOPATHY
     Dosage: 5 MILLIGRAM, ONCE
     Route: 042
  31. COTRIMOXAZOLE [Concomitant]
     Active Substance: SULFAMETHOXAZOLE\TRIMETHOPRIM
     Indication: INFECTION
     Dosage: 8280 MILLIGRAM, QD
     Route: 042
  32. CLARITHROMYCIN. [Concomitant]
     Active Substance: CLARITHROMYCIN
     Indication: INFECTION
     Dosage: 1000 MILLIGRAM, QD
     Route: 042
  33. ALFENTANIL. [Concomitant]
     Active Substance: ALFENTANIL
     Dosage: 1 MILLIGRAM PER MILLILITRE
     Route: 042
  34. SALBUTAMOL [Concomitant]
     Active Substance: ALBUTEROL
     Indication: WHEEZING
     Dosage: 5 MILLIGRAM NEBULISER
  35. CALCIUM GLUCONATE. [Concomitant]
     Active Substance: CALCIUM GLUCONATE
     Indication: HYPOCALCAEMIA
     Dosage: UNK
     Route: 042
  36. MORPHINE [Concomitant]
     Active Substance: MORPHINE
     Indication: PAIN
     Dosage: UNK, PRN AS NECESSARY
     Route: 048
  37. DIAZEPAM. [Concomitant]
     Active Substance: DIAZEPAM
     Dosage: 6 MILLIGRAM, QD

REACTIONS (4)
  - Pulmonary embolism [Not Recovered/Not Resolved]
  - Acute respiratory distress syndrome [Fatal]
  - Malaise [Not Recovered/Not Resolved]
  - Multiple organ dysfunction syndrome [Not Recovered/Not Resolved]

NARRATIVE: CASE EVENT DATE: 20191111
